FAERS Safety Report 17000610 (Version 1)
Quarter: 2019Q4

REPORT INFORMATION
  Report Type: Spontaneous
  Country: PH (occurrence: PH)
  Receive Date: 20191106
  Receipt Date: 20191106
  Transmission Date: 20200122
  Serious: Yes (Other)
  Sender: FDA-Public Use
  Company Number: PH-ASTRAZENECA-2019SF55590

PATIENT
  Sex: Female

DRUGS (2)
  1. TAGRISSO [Suspect]
     Active Substance: OSIMERTINIB
     Indication: LUNG CARCINOMA CELL TYPE UNSPECIFIED STAGE IV
     Route: 048
  2. ALIMTA [Concomitant]
     Active Substance: PEMETREXED DISODIUM
     Dosage: Q3W

REACTIONS (3)
  - Pneumonia [Unknown]
  - Fungal infection [Unknown]
  - Tooth abscess [Unknown]
